FAERS Safety Report 8925254 (Version 1)
Quarter: 2012Q4

REPORT INFORMATION
  Report Type: 
  Country: US (occurrence: US)
  Receive Date: 20121126
  Receipt Date: 20121126
  Transmission Date: 20130627
  Serious: Yes (Hospitalization, Other)
  Sender: FDA-Public Use
  Company Number: US-NOVOPROD-361997

PATIENT
  Age: 47 Year
  Sex: Male
  Weight: 127.89 kg

DRUGS (3)
  1. VICTOZA [Suspect]
     Indication: TYPE 2 DIABETES MELLITUS
     Dosage: 1.2 mg qd
     Route: 058
     Dates: start: 201109, end: 20121002
  2. LANTUS [Concomitant]
     Indication: TYPE 2 DIABETES MELLITUS
     Dosage: 60 U, bid
     Route: 058
  3. HUMALOG [Concomitant]
     Indication: TYPE 2 DIABETES MELLITUS
     Dosage: 60 U, qd; 10am, 20lunch, 30dinner
     Route: 058

REACTIONS (2)
  - Pancreatitis [Recovered/Resolved]
  - Colitis [Unknown]
